FAERS Safety Report 6533286-8 (Version None)
Quarter: 2010Q1

REPORT INFORMATION
  Report Type: 
  Country: None (occurrence: None)
  Receive Date: 20100111
  Receipt Date: 20091229
  Transmission Date: 20100710
  Serious: Yes (Hospitalization, Other)
  Sender: FDA-Public Use
  Company Number: US-MERCK-0709USA00197

PATIENT
  Age: 84 Year
  Sex: Male
  Weight: 107 kg

DRUGS (4)
  1. FOSAMAX [Suspect]
     Indication: OSTEOPOROSIS
     Route: 048
     Dates: start: 20030101, end: 20050101
  2. FOSAMAX [Suspect]
     Route: 048
     Dates: start: 20030616, end: 20050512
  3. STUDY DRUG (UNSPECIFIED) [Concomitant]
     Route: 065
     Dates: start: 19800101
  4. INSULIN [Concomitant]
     Route: 065
     Dates: start: 19990101

REACTIONS (18)
  - BLOOD CHOLESTEROL INCREASED [None]
  - BRONCHITIS [None]
  - DEAFNESS [None]
  - DENTAL CARIES [None]
  - DRUG HYPERSENSITIVITY [None]
  - FALL [None]
  - FIBULA FRACTURE [None]
  - GINGIVAL DISORDER [None]
  - HYPERTENSION [None]
  - IMPAIRED HEALING [None]
  - ORAL DISORDER [None]
  - ORAL INFECTION [None]
  - OSTEOMYELITIS [None]
  - OSTEONECROSIS [None]
  - PHIMOSIS [None]
  - PROSTATE CANCER METASTATIC [None]
  - URETHRAL MEATUS STENOSIS [None]
  - VARICOSE VEIN [None]
